FAERS Safety Report 11966948 (Version 3)
Quarter: 2016Q1

REPORT INFORMATION
  Report Type: Spontaneous
  Country: US (occurrence: US)
  Receive Date: 20160127
  Receipt Date: 20160218
  Transmission Date: 20160526
  Serious: Yes (Other)
  Sender: FDA-Public Use
  Company Number: US-SMITH AND NEPHEW, INC-2016SMT00037

PATIENT
  Age: 62 Year
  Sex: Male

DRUGS (4)
  1. BENICAR [Concomitant]
     Active Substance: OLMESARTAN MEDOXOMIL
     Dosage: 40 MG, 1X/DAY
  2. UNSPECIFIED BLOOD PRESSURE PILL [Concomitant]
     Indication: HYPERTENSION
     Dosage: UNK
  3. REGRANEX [Suspect]
     Active Substance: BECAPLERMIN
     Indication: WOUND
     Dosage: UNK UNK, ONCE
     Route: 061
     Dates: start: 201512, end: 201512
  4. INSULIN [Concomitant]
     Active Substance: INSULIN NOS
     Dosage: UNK, 2X/DAY

REACTIONS (6)
  - Wound complication [Recovering/Resolving]
  - Drug intolerance [Recovering/Resolving]
  - Bloody discharge [Recovering/Resolving]
  - Application site pain [Recovered/Resolved]
  - Drug hypersensitivity [Recovered/Resolved]
  - Wound infection staphylococcal [Recovered/Resolved]

NARRATIVE: CASE EVENT DATE: 20151130
